FAERS Safety Report 5662578-X (Version None)
Quarter: 2008Q1

REPORT INFORMATION
  Report Type: 
  Country: None (occurrence: None)
  Receive Date: 20080310
  Receipt Date: 20080310
  Transmission Date: 20080703
  Serious: Yes (Other)
  Sender: FDA-Public Use
  Company Number: None

PATIENT
  Age: 10 Year
  Sex: Male
  Weight: 38.1022 kg

DRUGS (1)
  1. SINGULAIR [Suspect]
     Indication: ASTHMA
     Dosage: 5MG QHS PO
     Route: 048
     Dates: start: 20080101, end: 20080301

REACTIONS (3)
  - AGGRESSION [None]
  - CRYING [None]
  - MOOD ALTERED [None]
